FAERS Safety Report 7415767-8 (Version None)
Quarter: 2011Q2

REPORT INFORMATION
  Report Type: 
  Country: None (occurrence: None)
  Receive Date: 20110406
  Receipt Date: 20110328
  Transmission Date: 20111010
  Serious: Yes (Other)
  Sender: FDA-Public Use
  Company Number: 2011MA003159

PATIENT
  Sex: Female
  Weight: 2.7 kg

DRUGS (3)
  1. LEVOTHYROXINE SODIUM [Concomitant]
  2. FOLIO FORTE [Concomitant]
  3. CITALOPRAM HYDROBROMIDE [Suspect]
     Indication: DRUG EXPOSURE DURING PREGNANCY
     Dosage: 20 MG;TRPL
     Route: 064
     Dates: start: 20100119, end: 20101107

REACTIONS (2)
  - SMALL FOR DATES BABY [None]
  - MATERNAL DRUGS AFFECTING FOETUS [None]
